FAERS Safety Report 4492856-1 (Version None)
Quarter: 2004Q4

REPORT INFORMATION
  Report Type: 
  Country: None (occurrence: None)
  Receive Date: 20041102
  Receipt Date: 20041025
  Transmission Date: 20050328
  Serious: Yes (Other)
  Sender: FDA-Public Use
  Company Number: FRWYE129021OCT04

PATIENT
  Age: 56 Year
  Sex: Female

DRUGS (3)
  1. RAPAMUNE [Suspect]
     Indication: PROPHYLAXIS AGAINST TRANSPLANT REJECTION
     Dosage: 5 MG 1 X PER 1 DAY, ORAL
     Route: 048
     Dates: start: 20031219, end: 20040721
  2. PROGRAF [Concomitant]
  3. PREDNISOLONE [Concomitant]

REACTIONS (6)
  - ASTHENIA [None]
  - CYANOSIS [None]
  - OEDEMA PERIPHERAL [None]
  - PHOSPHENES [None]
  - PROTEINURIA [None]
  - RETINAL DETACHMENT [None]
